FAERS Safety Report 20761486 (Version 1)
Quarter: 2022Q2

REPORT INFORMATION
  Report Type: Other
  Country: TW (occurrence: None)
  Receive Date: 20220428
  Receipt Date: 20220428
  Transmission Date: 20220720
  Serious: Yes (Other)
  Sender: FDA-Public Use
  Company Number: TW-ROCHE-2860295

PATIENT
  Age: 57 Year
  Sex: Male

DRUGS (4)
  1. TECENTRIQ [Suspect]
     Active Substance: ATEZOLIZUMAB
     Indication: Small cell lung cancer extensive stage
     Route: 065
  2. ACETYLCYSTEINE [Concomitant]
     Active Substance: ACETYLCYSTEINE
     Route: 048
  3. TRACETON [Concomitant]
     Dosage: TRAMADOL 37.5 MG/ ACETAMINOPHEN 325 MG AFTER MEALS
     Route: 048
  4. TRACETON [Concomitant]
     Dosage: TRAMADOL 37.5 MG/ ACETAMINOPHEN 325 MG WHEN NECESSARY
     Route: 048

REACTIONS (1)
  - Cellulitis [Unknown]

NARRATIVE: CASE EVENT DATE: 20210601
